FAERS Safety Report 4951206-4 (Version None)
Quarter: 2006Q1

REPORT INFORMATION
  Report Type: 
  Country: None (occurrence: None)
  Receive Date: 20060315
  Receipt Date: 20060303
  Transmission Date: 20060701
  Serious: Yes (Life-Threatening, Hospitalization)
  Sender: FDA-Public Use
  Company Number: 2005JP002322

PATIENT
  Age: 55 Year
  Sex: Female
  Weight: 47 kg

DRUGS (10)
  1. PROGRAF [Suspect]
     Dosage: SEE IMAGE
     Route: 048
     Dates: start: 20050601, end: 20050604
  2. PROGRAF [Suspect]
     Dosage: SEE IMAGE
     Route: 048
     Dates: start: 20050605, end: 20050607
  3. PROGRAF [Suspect]
     Dosage: SEE IMAGE
     Route: 048
     Dates: start: 20020101
  4. PREDNISOLONE [Suspect]
     Indication: MYASTHENIA GRAVIS
     Dosage: SEE IMAGE
     Dates: start: 19960101, end: 19990101
  5. PREDNISOLONE [Suspect]
     Indication: MYASTHENIA GRAVIS
     Dosage: SEE IMAGE
     Dates: start: 20020101, end: 20050101
  6. PREDNISOLONE [Suspect]
     Indication: MYASTHENIA GRAVIS
     Dosage: SEE IMAGE
     Dates: start: 20050601, end: 20050604
  7. PREDNISOLONE [Suspect]
     Indication: MYASTHENIA GRAVIS
     Dosage: SEE IMAGE
     Dates: start: 20050605, end: 20050607
  8. PYRIDOSTIGMINE BROMIDE [Suspect]
     Indication: MYASTHENIA GRAVIS
     Dosage: SEE IMAGE
     Dates: start: 20050531, end: 20050604
  9. PYRIDOSTIGMINE BROMIDE [Suspect]
     Indication: MYASTHENIA GRAVIS
     Dosage: SEE IMAGE
     Dates: start: 20050605, end: 20050607
  10. PYRIDOSTIGMINE BROMIDE [Suspect]
     Indication: MYASTHENIA GRAVIS
     Dosage: SEE IMAGE
     Dates: start: 19890101

REACTIONS (8)
  - ABDOMINAL ABSCESS [None]
  - ADENOCARCINOMA [None]
  - CHOLECYSTITIS ACUTE [None]
  - CHOLELITHIASIS [None]
  - ENDOCARDITIS ENTEROCOCCAL [None]
  - INFECTION [None]
  - PANCREATIC CARCINOMA [None]
  - PANCREATIC MASS [None]
